FAERS Safety Report 4408696-5 (Version None)
Quarter: 2004Q3

REPORT INFORMATION
  Report Type: 
  Country: None (occurrence: None)
  Receive Date: 20040723
  Receipt Date: 20040629
  Transmission Date: 20050211
  Serious: Yes (Hospitalization)
  Sender: FDA-Public Use
  Company Number: MK200407-0054-1

PATIENT
  Sex: Female

DRUGS (1)
  1. TECHNESCAN HDP [Suspect]
     Indication: BONE SCAN
     Dosage: SINGLE USE
     Dates: start: 20040607, end: 20040607

REACTIONS (5)
  - ASTHENIA [None]
  - AXILLARY PAIN [None]
  - BURNING SENSATION [None]
  - HEADACHE [None]
  - SENSATION OF HEAVINESS [None]
